FAERS Safety Report 19775837 (Version 1)
Quarter: 2021Q3

REPORT INFORMATION
  Report Type: Spontaneous
  Country: US (occurrence: US)
  Receive Date: 20210901
  Receipt Date: 20210901
  Transmission Date: 20211014
  Serious: Yes (Other)
  Sender: FDA-Public Use
  Company Number: US-ALKERMES INC.-ALK-2021-004527

PATIENT
  Sex: Female

DRUGS (1)
  1. VIVITROL [Suspect]
     Active Substance: NALTREXONE
     Indication: PRODUCT USED FOR UNKNOWN INDICATION
     Dosage: 380 MILLIGRAM, QMO
     Route: 030

REACTIONS (7)
  - Crying [Unknown]
  - Seizure [Unknown]
  - Injection site reaction [Unknown]
  - Injection site infection [Unknown]
  - Muscle spasms [Unknown]
  - Fatigue [Unknown]
  - Injection site mass [Unknown]

NARRATIVE: CASE EVENT DATE: 2021
